FAERS Safety Report 9900897 (Version 1)
Quarter: 2014Q1

REPORT INFORMATION
  Report Type: Report from Study
  Country: US (occurrence: US)
  Receive Date: 20140217
  Receipt Date: 20140217
  Transmission Date: 20141002
  Serious: No
  Sender: FDA-Public Use
  Company Number: US-ABBVIE-13P-163-1077196-00

PATIENT
  Age: 43 Year
  Sex: Male

DRUGS (1)
  1. SIMCOR 500/40 [Suspect]
     Indication: PRODUCT USED FOR UNKNOWN INDICATION
     Dosage: HALF TABLET OF 500/40
     Dates: start: 20130413

REACTIONS (1)
  - Wrong technique in drug usage process [Unknown]
